FAERS Safety Report 10593041 (Version 1)
Quarter: 2014Q4

REPORT INFORMATION
  Report Type: Spontaneous
  Country: US (occurrence: None)
  Receive Date: 20141118
  Receipt Date: 20141118
  Transmission Date: 20150529
  Serious: Yes (Hospitalization, Disabling, Other)
  Sender: FDA-Public Use
  Company Number: None

PATIENT
  Age: 24 Year
  Sex: Male
  Weight: 72.58 kg

DRUGS (1)
  1. CLINDAMYCIN 150 [Suspect]
     Active Substance: CLINDAMYCIN\CLINDAMYCIN PHOSPHATE
     Indication: INFECTION PROPHYLAXIS
     Dosage: 1 PILL EVERY 6 HOURS, THREE TIMES DAY, TAKEN BY MOUTH
     Route: 048
     Dates: start: 20141111, end: 20141117

REACTIONS (5)
  - Muscle spasms [None]
  - Diarrhoea [None]
  - Ulcer [None]
  - Abdominal pain upper [None]
  - Nausea [None]

NARRATIVE: CASE EVENT DATE: 20141111
